FAERS Safety Report 4556584-6 (Version None)
Quarter: 2005Q1

REPORT INFORMATION
  Report Type: 
  Country: None (occurrence: None)
  Receive Date: 20050114
  Receipt Date: 20050107
  Transmission Date: 20050727
  Serious: Yes (Hospitalization)
  Sender: FDA-Public Use
  Company Number: TPG2005A00010

PATIENT
  Age: 32 Year
  Sex: Female

DRUGS (1)
  1. ENANTONE-GYN MONATSDEPOT (LEUPRORELIN ACETATE) (3.75 MILLIGRAM, INJECT [Suspect]
     Indication: ENDOMETRIOSIS
     Dosage: 3.75 MG (3.75 MG, 1 IN 1 M)
     Route: 058
     Dates: start: 20040201

REACTIONS (6)
  - ASTHENIA [None]
  - BEDRIDDEN [None]
  - CONDITION AGGRAVATED [None]
  - HYPOPITUITARISM [None]
  - INFECTION [None]
  - OESTRADIOL DECREASED [None]
